FAERS Safety Report 19779522 (Version 8)
Quarter: 2024Q2

REPORT INFORMATION
  Report Type: Spontaneous
  Country: US (occurrence: US)
  Receive Date: 20210902
  Receipt Date: 20240509
  Transmission Date: 20240715
  Serious: No
  Sender: FDA-Public Use
  Company Number: US-PFIZER INC-202101041793

PATIENT
  Age: 42 Year
  Sex: Female

DRUGS (1)
  1. XELJANZ XR [Suspect]
     Active Substance: TOFACITINIB CITRATE
     Dosage: 11 MG

REACTIONS (8)
  - Joint injury [Unknown]
  - Skin injury [Unknown]
  - Movement disorder [Unknown]
  - Pain in extremity [Unknown]
  - Rash [Unknown]
  - Oral mucosal eruption [Unknown]
  - Gait inability [Unknown]
  - Feeding disorder [Unknown]
